FAERS Safety Report 6518803-6 (Version None)
Quarter: 2009Q4

REPORT INFORMATION
  Report Type: 
  Country: None (occurrence: None)
  Receive Date: 20091228
  Receipt Date: 20091215
  Transmission Date: 20100525
  Serious: No
  Sender: FDA-Public Use
  Company Number: US-JNJFOC-20091205126

PATIENT
  Sex: Male
  Weight: 59.88 kg

DRUGS (5)
  1. DURAGESIC-100 [Suspect]
     Indication: PANCREATITIS CHRONIC
     Route: 062
  2. PERCOCET [Concomitant]
     Indication: BREAKTHROUGH PAIN
  3. KLONOPIN [Concomitant]
     Indication: ANXIETY
  4. EFFEXOR [Concomitant]
     Indication: DEPRESSION
  5. PANCREASE MT [Concomitant]
     Indication: ENZYME SUPPLEMENTATION

REACTIONS (5)
  - DRUG EFFECT DECREASED [None]
  - HYPOKINESIA [None]
  - INCORRECT DRUG ADMINISTRATION RATE [None]
  - PAIN [None]
  - THERAPEUTIC RESPONSE DECREASED [None]
